FAERS Safety Report 4383675-5 (Version None)
Quarter: 2004Q2

REPORT INFORMATION
  Report Type: 
  Country: None (occurrence: None)
  Receive Date: 20040623
  Receipt Date: 20040615
  Transmission Date: 20050107
  Serious: Yes (Death)
  Sender: FDA-Public Use
  Company Number: US-GLAXOSMITHKLINE-B0335879A

PATIENT

DRUGS (5)
  1. MELPHALAN [Suspect]
     Dosage: 150MGM2 UNKNOWN
     Route: 065
  2. BUSULPHAN [Suspect]
     Dosage: 12.8MGK UNKNOWN
     Route: 042
  3. CYTOXAN [Suspect]
     Dosage: 120MGK UNKNOWN
     Route: 065
  4. INTERFERON ALPHA 2 [Suspect]
     Dosage: 3U6 THREE TIMES PER WEEK
     Route: 058
  5. NEUPOGEN [Concomitant]
     Dosage: 10MCK UNKNOWN
     Route: 065

REACTIONS (1)
  - SEPSIS [None]
